FAERS Safety Report 7710062-1 (Version None)
Quarter: 2011Q3

REPORT INFORMATION
  Report Type: 
  Country: None (occurrence: None)
  Receive Date: 20110825
  Receipt Date: 20110817
  Transmission Date: 20111222
  Serious: Yes (Other)
  Sender: FDA-Public Use
  Company Number: PHEH2011US01924

PATIENT
  Sex: Female
  Weight: 74.376 kg

DRUGS (5)
  1. HYZAAR [Concomitant]
  2. TASIGNA [Suspect]
     Dosage: 300 MG AM AND 200 MG PM
     Route: 048
     Dates: start: 20110602
  3. CITALOPRAM HYDROBROMIDE [Concomitant]
  4. TASIGNA [Suspect]
     Dosage: 200 MG, QD
     Route: 048
  5. LISINOPRIL [Concomitant]
     Dosage: 10 MG, UNK

REACTIONS (2)
  - BREAST CYST [None]
  - INFLAMMATION [None]
